FAERS Safety Report 4883132-3 (Version None)
Quarter: 2006Q1

REPORT INFORMATION
  Report Type: 
  Country: None (occurrence: None)
  Receive Date: 20060117
  Receipt Date: 20060117
  Transmission Date: 20060701
  Serious: Yes (Hospitalization)
  Sender: FDA-Public Use
  Company Number: None

PATIENT
  Age: 62 Year
  Sex: Female
  Weight: 74.4 kg

DRUGS (1)
  1. HERCEPTIN [Suspect]
     Indication: BREAST CANCER METASTATIC
     Dosage: 296 MG  WEEKLY  IV DRIP   (1 DOSE)
     Route: 041
     Dates: start: 20060103, end: 20060103

REACTIONS (2)
  - CEREBROVASCULAR ACCIDENT [None]
  - DYSPNOEA [None]
